FAERS Safety Report 5271665-X (Version None)
Quarter: 2007Q1

REPORT INFORMATION
  Report Type: 
  Country: None (occurrence: None)
  Receive Date: 20070321
  Receipt Date: 20070313
  Transmission Date: 20070707
  Serious: Yes (Other)
  Sender: FDA-Public Use
  Company Number: BR-PFIZER INC-2007018521

PATIENT
  Sex: Female

DRUGS (2)
  1. ALPRAZOLAM [Suspect]
     Indication: PANIC DISORDER
     Dosage: DAILY DOSE:1MG
     Route: 048
     Dates: start: 20070201, end: 20070228
  2. CLONAZEPAM [Concomitant]
     Route: 048

REACTIONS (10)
  - ANXIETY [None]
  - AREFLEXIA [None]
  - ASTHENIA [None]
  - HEADACHE [None]
  - HYPOKINESIA [None]
  - OFF LABEL USE [None]
  - PSYCHIATRIC SYMPTOM [None]
  - SKIN INFLAMMATION [None]
  - SOMNOLENCE [None]
  - VISION BLURRED [None]
